FAERS Safety Report 4608050-7 (Version None)
Quarter: 2005Q2

REPORT INFORMATION
  Report Type: 
  Country: None (occurrence: None)
  Receive Date: 20050303
  Receipt Date: 20041122
  Transmission Date: 20051028
  Serious: No
  Sender: FDA-Public Use
  Company Number: 210647

PATIENT
  Age: 12 Year
  Sex: Male

DRUGS (5)
  1. XOLAIR [Suspect]
     Indication: ASTHMA
     Dosage: QW2, SUBCUTANEOUS
     Route: 058
     Dates: start: 20040201
  2. ADVAIR (FLUTICASONE PROPIONATE, SALMETEROL XINAFOATE) [Concomitant]
  3. XOPENEX [Concomitant]
  4. PULMICORT [Concomitant]
  5. PREDNISONE [Concomitant]

REACTIONS (1)
  - MIGRAINE [None]
